FAERS Safety Report 20784692 (Version 2)
Quarter: 2022Q2

REPORT INFORMATION
  Report Type: Report from Study
  Country: CA (occurrence: CA)
  Receive Date: 20220504
  Receipt Date: 20220509
  Transmission Date: 20220721
  Serious: Yes (Other)
  Sender: FDA-Public Use
  Company Number: CA-JNJFOC-20220501971

PATIENT
  Age: 10 Year
  Sex: Female
  Weight: 30 kg

DRUGS (4)
  1. REMICADE [Suspect]
     Active Substance: INFLIXIMAB
     Indication: Crohn^s disease
     Route: 042
     Dates: start: 20200921
  2. REMICADE [Suspect]
     Active Substance: INFLIXIMAB
     Route: 042
  3. REMICADE [Suspect]
     Active Substance: INFLIXIMAB
     Route: 042
  4. REMICADE [Suspect]
     Active Substance: INFLIXIMAB
     Route: 042
     Dates: start: 20220504

REACTIONS (4)
  - Cellulitis [Unknown]
  - Herpes virus infection [Recovering/Resolving]
  - Abdominal pain [Not Recovered/Not Resolved]
  - Frequent bowel movements [Not Recovered/Not Resolved]

NARRATIVE: CASE EVENT DATE: 20220101
